FAERS Safety Report 7743502-2 (Version None)
Quarter: 2011Q3

REPORT INFORMATION
  Report Type: 
  Country: None (occurrence: None)
  Receive Date: 20110912
  Receipt Date: 20110830
  Transmission Date: 20111222
  Serious: No
  Sender: FDA-Public Use
  Company Number: US-ABBOTT-11P-163-0851292-00

PATIENT
  Age: 9 Year
  Sex: Female
  Weight: 27.24 kg

DRUGS (1)
  1. DEPAKOTE [Suspect]
     Indication: PETIT MAL EPILEPSY
     Dosage: 2 CAPS TWICE DAILY. TOTAL 1000 MG DAILY.
     Dates: start: 20040101

REACTIONS (2)
  - CARNITINE DECREASED [None]
  - MITOCHONDRIAL CYTOPATHY [None]
